FAERS Safety Report 11562829 (Version 1)
Quarter: 2015Q3

REPORT INFORMATION
  Report Type: Spontaneous
  Country: US (occurrence: US)
  Receive Date: 20150928
  Receipt Date: 20150928
  Transmission Date: 20151125
  Serious: No
  Sender: FDA-Public Use
  Company Number: US-COREPHARMA LLC-2014COR00150

PATIENT
  Age: 43 Year
  Sex: Male
  Weight: 81.63 kg

DRUGS (9)
  1. SULFAMETHOXAZOLE/TRIMETHOPRIM 800/160 MG [Concomitant]
     Dosage: 1 TABLETS, 2X/DAY
  2. TESTOSTERONE INJECTION 200 MG/ML [Concomitant]
     Dosage: 200 MG, 1X/WEEK
  3. OMEPRAZOLE OTC [Suspect]
     Active Substance: OMEPRAZOLE
  4. CYMBALTA [Suspect]
     Active Substance: DULOXETINE HYDROCHLORIDE
     Dosage: 60 MG, 1X/DAY
  5. HYDROCODONE/ACETAMINOPHEN 7.5/325 MG [Concomitant]
     Dosage: UNK, AS NEEDED
  6. DEXTROAMPHET SACCHARAT, AMPHET ASPARTATE, DEXTROAMPHET SULFATE AND AMPHET SULFAT [Suspect]
     Active Substance: AMPHETAMINE ASPARTATE\AMPHETAMINE SULFATE\DEXTROAMPHETAMINE SACCHARATE\DEXTROAMPHETAMINE SULFATE
     Indication: DISTURBANCE IN ATTENTION
     Dosage: 10 MG, 2X/DAY
     Route: 048
     Dates: start: 2012, end: 201408
  7. RANITIDINE [Suspect]
     Active Substance: RANITIDINE\RANITIDINE HYDROCHLORIDE
     Dosage: 150 MG, UNK
  8. AMOXICILLIN/CLAVUNATE [Concomitant]
     Dosage: 875 MG, UNK
  9. SOMA [Concomitant]
     Active Substance: CARISOPRODOL
     Dosage: 350 MG, AS NEEDED

REACTIONS (1)
  - Drug screen positive [Recovered/Resolved]

NARRATIVE: CASE EVENT DATE: 20140722
